FAERS Safety Report 6933485-7 (Version None)
Quarter: 2010Q3

REPORT INFORMATION
  Report Type: 
  Country: None (occurrence: None)
  Receive Date: 20100820
  Receipt Date: 20100812
  Transmission Date: 20110219
  Serious: Yes (Other)
  Sender: FDA-Public Use
  Company Number: GB-PFIZER INC-2010101840

PATIENT
  Age: 31 Year
  Sex: Male
  Weight: 77 kg

DRUGS (3)
  1. CHAMPIX [Suspect]
     Indication: SMOKING CESSATION THERAPY
     Dosage: 0.5 MG, UNK
     Route: 048
     Dates: start: 20100729, end: 20100729
  2. ACETAMINOPHEN AND CODEINE PHOSPHATE [Concomitant]
  3. PARACETAMOL [Concomitant]

REACTIONS (5)
  - DIZZINESS [None]
  - DYSURIA [None]
  - LACRIMATION INCREASED [None]
  - RENAL PAIN [None]
  - SOMNOLENCE [None]
